FAERS Safety Report 9324308 (Version 1)
Quarter: 2013Q2

REPORT INFORMATION
  Report Type: Spontaneous
  Country: IT (occurrence: IT)
  Receive Date: 20130603
  Receipt Date: 20130603
  Transmission Date: 20140414
  Serious: Yes (Hospitalization)
  Sender: FDA-Public Use
  Company Number: IT-FRI-1000045575

PATIENT
  Age: 4 Year
  Sex: Male
  Weight: 16 kg

DRUGS (2)
  1. NEBIVOLOL [Suspect]
     Dosage: 5 MG
     Route: 048
     Dates: start: 20130515, end: 20130515
  2. NORVASC [Suspect]
     Dosage: 5 MG
     Route: 048
     Dates: start: 20130515, end: 20130515

REACTIONS (2)
  - Malaise [Recovering/Resolving]
  - Accidental exposure to product [Recovering/Resolving]
